FAERS Safety Report 8980430 (Version 1)
Quarter: 2012Q4

REPORT INFORMATION
  Report Type: 
  Country: CA (occurrence: CA)
  Receive Date: 20121221
  Receipt Date: 20121221
  Transmission Date: 20130627
  Serious: Yes (Life-Threatening, Other)
  Sender: FDA-Public Use
  Company Number: GXKR2010CA02004

PATIENT
  Age: 11 Year
  Sex: Female

DRUGS (8)
  1. IRINOTECAN [Suspect]
     Indication: RHABDOMYOSARCOMA
     Dosage: 50 mg/m2/day for 5 days
     Route: 065
  2. VINCRISTINE [Suspect]
     Indication: RHABDOMYOSARCOMA
     Dosage: 1.5 mg/m2, UNK
     Route: 065
  3. VINCRISTINE [Suspect]
  4. DACTINOMYCIN [Concomitant]
     Indication: RHABDOMYOSARCOMA
     Dosage: 0.045 mg/kg, UNK
     Route: 065
  5. CYCLOPHOSPHAMIDE [Concomitant]
     Indication: RHABDOMYOSARCOMA
     Route: 065
  6. RADIATION [Concomitant]
     Indication: RHABDOMYOSARCOMA
     Route: 065
  7. GRANULOCYTE COLONY STIMULATING FACTOR [Concomitant]
     Indication: RHABDOMYOSARCOMA
     Dosage: 5 ug/kg/day
     Route: 065
  8. ACTINOMYCIN D [Concomitant]
     Indication: RHABDOMYOSARCOMA

REACTIONS (3)
  - Neutropenia [Recovered/Resolved]
  - Neuropathy peripheral [Recovered/Resolved]
  - Constipation [Recovered/Resolved]
